FAERS Safety Report 5673949-X (Version None)
Quarter: 2008Q1

REPORT INFORMATION
  Report Type: 
  Country: None (occurrence: None)
  Receive Date: 20080319
  Receipt Date: 20080319
  Transmission Date: 20080703
  Serious: No
  Sender: FDA-Public Use
  Company Number: None

PATIENT
  Sex: Female
  Weight: 107.5 kg

DRUGS (2)
  1. CYCLOPHOSPHAMIDE [Suspect]
     Dosage: 1260 MG
  2. DOXORUBICIN HCL [Suspect]
     Dosage: 126 MG

REACTIONS (7)
  - ASTHENIA [None]
  - BODY TEMPERATURE DECREASED [None]
  - COUGH [None]
  - HAEMOGLOBIN DECREASED [None]
  - ORTHOSTATIC HYPOTENSION [None]
  - SYNCOPE [None]
  - WHITE BLOOD CELL COUNT DECREASED [None]
